FAERS Safety Report 25798955 (Version 1)
Quarter: 2025Q3

REPORT INFORMATION
  Report Type: Spontaneous
  Country: GB (occurrence: GB)
  Receive Date: 20250913
  Receipt Date: 20250913
  Transmission Date: 20251021
  Serious: Yes (Other)
  Sender: AUROBINDO
  Company Number: GB-MHRA-MED-202508310413058980-DCTMZ

PATIENT
  Age: 35 Year
  Sex: Female

DRUGS (1)
  1. LISINOPRIL [Suspect]
     Active Substance: LISINOPRIL
     Indication: Adverse drug reaction
     Route: 065

REACTIONS (4)
  - Medication error [Unknown]
  - Cough [Not Recovered/Not Resolved]
  - Dizziness [Not Recovered/Not Resolved]
  - Illness [Recovering/Resolving]

NARRATIVE: CASE EVENT DATE: 20241210
